FAERS Safety Report 8556641-3 (Version None)
Quarter: 2012Q3

REPORT INFORMATION
  Report Type: 
  Country: None (occurrence: None)
  Receive Date: 20120801
  Receipt Date: 20120719
  Transmission Date: 20120928
  Serious: Yes (Other)
  Sender: FDA-Public Use
  Company Number: US-BRISTOL-MYERS SQUIBB COMPANY-16788226

PATIENT
  Age: 52 Year
  Sex: Female
  Weight: 59 kg

DRUGS (1)
  1. KENALOG [Suspect]
     Indication: TENOSYNOVITIS STENOSANS
     Dosage: KENALOG INJECTION  LATEST INJ: 05JAN11
     Dates: start: 20080101

REACTIONS (4)
  - CONTUSION [None]
  - VASODILATATION [None]
  - SKIN ATROPHY [None]
  - WOUND HAEMORRHAGE [None]
